FAERS Safety Report 14119240 (Version 1)
Quarter: 2017Q4

REPORT INFORMATION
  Report Type: Spontaneous
  Country: US (occurrence: US)
  Receive Date: 20171023
  Receipt Date: 20171023
  Transmission Date: 20180321
  Serious: Yes (Disabling)
  Sender: FDA-Public Use
  Company Number: None

PATIENT
  Sex: Female
  Weight: 63 kg

DRUGS (6)
  1. COMPRESSION SLEEVE AND GLOVE ON RIGHT ARM/HAND [Concomitant]
  2. TAXOTERE [Suspect]
     Active Substance: DOCETAXEL
     Indication: BILE DUCT CANCER
     Route: 042
     Dates: start: 20110106, end: 20110106
  3. VITAMIN D3 [Concomitant]
     Active Substance: CHOLECALCIFEROL
  4. CLONIDINE. [Concomitant]
     Active Substance: CLONIDINE
  5. TAMOXIFEN [Concomitant]
     Active Substance: TAMOXIFEN
  6. TRAMADOL. [Concomitant]
     Active Substance: TRAMADOL

REACTIONS (6)
  - Pain in extremity [None]
  - Hypoaesthesia [None]
  - Neuropathy peripheral [None]
  - Peripheral swelling [None]
  - Feeling hot [None]
  - Skin exfoliation [None]

NARRATIVE: CASE EVENT DATE: 20110106
